FAERS Safety Report 5349592-9 (Version None)
Quarter: 2007Q2

REPORT INFORMATION
  Report Type: 
  Country: None (occurrence: None)
  Receive Date: 20070607
  Receipt Date: 20070529
  Transmission Date: 20071010
  Serious: Yes (Hospitalization, Other)
  Sender: FDA-Public Use
  Company Number: US-ELI_LILLY_AND_COMPANY-US200705000948

PATIENT
  Age: 78 Year
  Sex: Female
  Weight: 48.526 kg

DRUGS (11)
  1. FORTEO [Suspect]
     Indication: OSTEOPOROSIS
     Dosage: 20 UG, DAILY (1/D)
     Dates: start: 20050921, end: 20060610
  2. EVISTA [Suspect]
     Indication: OSTEOPOROSIS
     Dosage: 60 MG, DAILY (1/D)
     Dates: start: 20070201
  3. EVISTA [Suspect]
     Dosage: UNK D/F, UNK
  4. LABETALOL HCL [Concomitant]
     Indication: HYPERTENSION
     Dosage: 200 MG, 2/D
  5. DIOVAN [Concomitant]
     Indication: HYPERTENSION
     Dosage: 80 MG, DAILY (1/D)
  6. FUROSEMIDE [Concomitant]
     Indication: FLUID RETENTION
     Dosage: 40 MG, DAILY (1/D)
  7. FUROSEMIDE [Concomitant]
     Dosage: 20 MG, DAILY (1/D)
  8. K-TAB [Concomitant]
     Indication: ELECTROLYTE SUBSTITUTION THERAPY
     Dosage: 10 MEQ, 2/D
  9. SIMVASTATIN [Concomitant]
     Dosage: 20 MG, DAILY (1/D)
  10. SYNTHROID [Concomitant]
     Dosage: 70 MG, EACH MORNING
  11. DETROL [Concomitant]
     Dosage: 2 MG, DAILY (1/D)

REACTIONS (3)
  - ANAEMIA [None]
  - CARDIAC FAILURE CONGESTIVE [None]
  - CEREBROVASCULAR ACCIDENT [None]
